FAERS Safety Report 9393421 (Version 1)
Quarter: 2013Q3

REPORT INFORMATION
  Report Type: Spontaneous
  Country: US (occurrence: None)
  Receive Date: 20130709
  Receipt Date: 20130709
  Transmission Date: 20140515
  Serious: Yes (Hospitalization)
  Sender: FDA-Public Use
  Company Number: None

PATIENT
  Age: 42 Year
  Sex: Male
  Weight: 53.5 kg

DRUGS (2)
  1. CARBOPLATIN [Suspect]
     Dates: end: 20130426
  2. DOCETAXEL (TAXOTERE) [Suspect]
     Dates: end: 20130426

REACTIONS (4)
  - Pain [None]
  - Swelling [None]
  - Blood culture positive [None]
  - Escherichia infection [None]
